FAERS Safety Report 23943867 (Version 2)
Quarter: 2024Q2

REPORT INFORMATION
  Report Type: Spontaneous
  Country: FR (occurrence: FR)
  Receive Date: 20240606
  Receipt Date: 20240611
  Transmission Date: 20240716
  Serious: Yes (Hospitalization, Other)
  Sender: FDA-Public Use
  Company Number: FR-CELLTRION INC.-2024FR013148

PATIENT

DRUGS (2)
  1. RITUXIMAB [Suspect]
     Active Substance: RITUXIMAB
     Indication: Haemolytic anaemia
     Dosage: UNK
     Route: 064
     Dates: start: 20220104, end: 20220104
  2. SOLIRIS [Suspect]
     Active Substance: ECULIZUMAB
     Indication: Haemolytic anaemia
     Dosage: UNK
     Route: 064
     Dates: start: 20220103, end: 20220103

REACTIONS (5)
  - Cephalhaematoma [Recovered/Resolved]
  - Total complement activity decreased [Recovering/Resolving]
  - Skin mass [Recovered/Resolved]
  - B-lymphocyte abnormalities [Recovering/Resolving]
  - Foetal exposure during pregnancy [Unknown]

NARRATIVE: CASE EVENT DATE: 20220112
